FAERS Safety Report 9803735 (Version 1)
Quarter: 2014Q1

REPORT INFORMATION
  Report Type: Spontaneous
  Country: US (occurrence: US)
  Receive Date: 20140108
  Receipt Date: 20140108
  Transmission Date: 20141002
  Serious: Yes (Death)
  Sender: FDA-Public Use
  Company Number: US-BAYER-2014-002612

PATIENT
  Age: 50 Year
  Sex: Male

DRUGS (5)
  1. DIPHENHYDRAMINE HYDROCHLORIDE [Suspect]
  2. HEROIN [Suspect]
  3. COCAINE [Suspect]
  4. PHENCYCLIDINE [Suspect]
  5. ETHANOL [Suspect]

REACTIONS (1)
  - Drug abuse [Fatal]
